FAERS Safety Report 6320543-3 (Version None)
Quarter: 2009Q3

REPORT INFORMATION
  Report Type: 
  Country: None (occurrence: None)
  Receive Date: 20090822
  Receipt Date: 20081117
  Transmission Date: 20100115
  Serious: No
  Sender: FDA-Public Use
  Company Number: US-ABBOTT-08P-163-0488635-00

PATIENT
  Sex: Male

DRUGS (9)
  1. NIASPAN [Suspect]
     Indication: HIGH DENSITY LIPOPROTEIN DECREASED
     Dosage: 500 Q HS
     Dates: start: 20081101
  2. NIASPAN [Suspect]
     Indication: HIGH DENSITY LIPOPROTEIN DECREASED
  3. FENOFIBRATE [Concomitant]
     Indication: DRUG USE FOR UNKNOWN INDICATION
  4. LISINOPRIL [Concomitant]
     Indication: DRUG USE FOR UNKNOWN INDICATION
  5. FOLIC ACID [Concomitant]
     Indication: DRUG USE FOR UNKNOWN INDICATION
  6. LINUM USITATISSIMUM SEED OIL [Concomitant]
     Indication: DRUG USE FOR UNKNOWN INDICATION
  7. FISH OIL [Concomitant]
     Indication: DRUG USE FOR UNKNOWN INDICATION
  8. VITAMIN E [Concomitant]
     Indication: DRUG USE FOR UNKNOWN INDICATION
  9. UNKNOWN [Concomitant]
     Indication: DRUG USE FOR UNKNOWN INDICATION

REACTIONS (1)
  - FLUSHING [None]
